FAERS Safety Report 13182865 (Version 2)
Quarter: 2017Q1

REPORT INFORMATION
  Report Type: Spontaneous
  Country: FI (occurrence: FI)
  Receive Date: 20170203
  Receipt Date: 20170322
  Transmission Date: 20170428
  Serious: Yes (Hospitalization)
  Sender: FDA-Public Use
  Company Number: FI-AMGEN-FINSP2017015938

PATIENT
  Age: 80 Year
  Sex: Female

DRUGS (6)
  1. PROLIA [Suspect]
     Active Substance: DENOSUMAB
     Indication: PRODUCT USED FOR UNKNOWN INDICATION
     Dosage: 60 MG/2
     Route: 058
     Dates: start: 20160525, end: 20161124
  2. KALCIPOS-D [Concomitant]
     Active Substance: CALCIUM CARBONATE\CHOLECALCIFEROL
     Dosage: 2 DF/D
     Route: 048
     Dates: start: 2008
  3. SOMAC [Concomitant]
     Active Substance: PANTOPRAZOLE SODIUM
     Dosage: 20 MG/D
     Route: 048
     Dates: start: 2008
  4. TEMESTA [Concomitant]
     Active Substance: LORAZEPAM
     Dosage: 1 MG/D
     Route: 048
  5. PREDNISOLON [Concomitant]
     Active Substance: PREDNISOLONE
     Dosage: UNK
     Route: 048
     Dates: start: 2008
  6. MAREVAN [Concomitant]
     Active Substance: WARFARIN SODIUM
     Dosage: UNK
     Route: 048
     Dates: start: 2015

REACTIONS (6)
  - Fall [Not Recovered/Not Resolved]
  - Temporomandibular joint syndrome [Not Recovered/Not Resolved]
  - Constipation [Unknown]
  - Muscular weakness [Not Recovered/Not Resolved]
  - Tooth loss [Not Recovered/Not Resolved]
  - Ear discomfort [Not Recovered/Not Resolved]

NARRATIVE: CASE EVENT DATE: 20161223
